FAERS Safety Report 7378676-9 (Version None)
Quarter: 2011Q1

REPORT INFORMATION
  Report Type: 
  Country: None (occurrence: None)
  Receive Date: 20110328
  Receipt Date: 20110323
  Transmission Date: 20110831
  Serious: Yes (Life-Threatening, Hospitalization, Other)
  Sender: FDA-Public Use
  Company Number: SE-PFIZER INC-2011064057

PATIENT
  Age: 64 Year
  Sex: Female

DRUGS (12)
  1. SIMVASTATIN [Concomitant]
     Dosage: UNK
  2. THERALEN [Concomitant]
     Dosage: UNK
  3. LANTUS [Concomitant]
     Dosage: UNK
  4. LYRICA [Suspect]
  5. VOLTAREN [Suspect]
     Dosage: 150MG DAILY
     Route: 048
  6. TROMBYL [Concomitant]
     Dosage: UNK
  7. ENALAPRIL [Suspect]
     Dosage: 20MG DAILY
     Route: 048
  8. PAROXETINE [Concomitant]
     Dosage: UNK
  9. DOLCONTIN [Suspect]
     Dosage: 50MG DAILY
     Route: 048
  10. METADON [Suspect]
     Dosage: 70MG DAILY
     Route: 048
  11. ALVEDON [Concomitant]
     Dosage: UNK
  12. NOVORAPID [Concomitant]
     Dosage: UNK

REACTIONS (5)
  - METABOLIC ACIDOSIS [None]
  - BACK PAIN [None]
  - RENAL FAILURE ACUTE [None]
  - UPPER LIMB FRACTURE [None]
  - RESPIRATORY DEPRESSION [None]
